FAERS Safety Report 8892457 (Version 4)
Quarter: 2013Q2

REPORT INFORMATION
  Report Type: Spontaneous
  Country: SE (occurrence: SE)
  Receive Date: 20121107
  Receipt Date: 20130403
  Transmission Date: 20140414
  Serious: Yes (Death)
  Sender: FDA-Public Use
  Company Number: SE-GLAXOSMITHKLINE-B0842780A

PATIENT
  Age: 37 Year
  Sex: Female

DRUGS (5)
  1. LAMICTAL [Suspect]
     Indication: PRODUCT USED FOR UNKNOWN INDICATION
  2. LYRICA [Suspect]
     Indication: PRODUCT USED FOR UNKNOWN INDICATION
     Dosage: 300MG PER DAY
     Dates: start: 201110, end: 201208
  3. IMOVANE [Suspect]
     Indication: PRODUCT USED FOR UNKNOWN INDICATION
  4. PROPAVAN [Suspect]
     Indication: PRODUCT USED FOR UNKNOWN INDICATION
  5. METHADONE [Suspect]
     Indication: PRODUCT USED FOR UNKNOWN INDICATION
     Route: 065

REACTIONS (6)
  - Brain hypoxia [Unknown]
  - Death [Fatal]
  - Respiratory depression [Unknown]
  - Loss of consciousness [Unknown]
  - Drug dependence [Unknown]
  - Dyspnoea [Unknown]
